FAERS Safety Report 9619431 (Version 1)
Quarter: 2013Q4

REPORT INFORMATION
  Report Type: Spontaneous
  Country: US (occurrence: US)
  Receive Date: 20131014
  Receipt Date: 20131014
  Transmission Date: 20140711
  Serious: Yes (Other)
  Sender: FDA-Public Use
  Company Number: US-ELI_LILLY_AND_COMPANY-US201310001304

PATIENT
  Age: 60 Year
  Sex: Male

DRUGS (2)
  1. ALIMTA [Suspect]
     Indication: NON-SMALL CELL LUNG CANCER STAGE IV
     Dosage: 500 MG/M2, UNKNOWN
     Route: 042
     Dates: start: 20130802, end: 20130822
  2. CARBOPLATIN [Suspect]
     Dosage: UNK
     Dates: start: 20130802, end: 20130822

REACTIONS (2)
  - Haemolytic anaemia [Unknown]
  - Off label use [Recovered/Resolved]
